FAERS Safety Report 4587292-3 (Version None)
Quarter: 2005Q1

REPORT INFORMATION
  Report Type: 
  Country: None (occurrence: None)
  Receive Date: 20050218
  Receipt Date: 20050125
  Transmission Date: 20050727
  Serious: Yes (Hospitalization)
  Sender: FDA-Public Use
  Company Number: NZ-BRISTOL-MYERS SQUIBB COMPANY-12835955

PATIENT
  Age: 88 Year
  Sex: Female

DRUGS (7)
  1. MYCOSTATIN [Suspect]
     Indication: ORAL CANDIDIASIS
     Route: 048
     Dates: start: 20050124, end: 20050124
  2. CEFACLOR [Concomitant]
  3. DIGOXIN [Concomitant]
  4. FRUSEMIDE [Concomitant]
  5. THYROXINE [Concomitant]
  6. SOLPRIN [Concomitant]
  7. PREDNISONE [Concomitant]

REACTIONS (2)
  - CARDIAC DISORDER [None]
  - PHARYNGOLARYNGEAL PAIN [None]
